FAERS Safety Report 7819204-0 (Version None)
Quarter: 2011Q4

REPORT INFORMATION
  Report Type: 
  Country: None (occurrence: None)
  Receive Date: 20111018
  Receipt Date: 20111013
  Transmission Date: 20120403
  Serious: Yes (Hospitalization)
  Sender: FDA-Public Use
  Company Number: US-BRISTOL-MYERS SQUIBB COMPANY-15897051

PATIENT
  Age: 63 Year
  Sex: Male

DRUGS (7)
  1. ZOLPIDEM [Concomitant]
     Dates: start: 20080101
  2. IPILIMUMAB [Suspect]
     Indication: MALIGNANT MELANOMA
     Route: 042
     Dates: start: 20100902, end: 20110419
  3. ALEVE [Concomitant]
  4. LYRICA [Concomitant]
     Dates: start: 20100901
  5. SYNTHROID [Concomitant]
     Dates: start: 20110215
  6. BIFIDOBACTERIUM INFANTIS [Concomitant]
     Dates: start: 20110701
  7. OMEPRAZOLE [Concomitant]
     Dates: start: 20010101

REACTIONS (2)
  - COLITIS [None]
  - DEHYDRATION [None]
